FAERS Safety Report 5112446-7 (Version None)
Quarter: 2006Q3

REPORT INFORMATION
  Report Type: 
  Country: None (occurrence: None)
  Receive Date: 20060922
  Receipt Date: 20060726
  Transmission Date: 20061208
  Serious: Yes (Other)
  Sender: FDA-Public Use
  Company Number: GBWYE362326JUL06

PATIENT
  Sex: Female
  Weight: 48.2 kg

DRUGS (10)
  1. ENBREL [Suspect]
     Indication: DRUG USE FOR UNKNOWN INDICATION
     Route: 058
     Dates: start: 20060718
  2. BUDESONIDE [Concomitant]
     Dosage: 200MCG  FREQUENCY UNSPECIFIED
     Route: 048
  3. SULFASALAZINE [Concomitant]
     Dosage: 500MG  FREQUENCY UNSPECIFIED
     Route: 048
  4. MICROGYNON [Concomitant]
     Dosage: UNKNOWN
  5. DICLOFENAC SODIUM [Concomitant]
     Dosage: 75MG  FREQUENCY UNSPECIFIED
     Route: 048
  6. LANSOPRAZOLE [Concomitant]
     Dosage: 15MG  FREQUENCY UNSPECIFIED
     Route: 048
  7. TERBUTALINE [Concomitant]
     Dosage: UNKNOWN
  8. LEFLUNOMIDE [Concomitant]
     Dosage: 20MG  FREQUENCY UNKNOWN
     Route: 048
  9. METHOTREXATE [Concomitant]
     Dosage: 2.5MG  FREQUENCY UNSPECIFIED
     Route: 048
     Dates: start: 20040415, end: 20050101
  10. TRAMADOL HCL [Concomitant]
     Dosage: 100MG  FREQUENCY UNSPECIFIED
     Route: 048

REACTIONS (1)
  - TACHYCARDIA [None]
